FAERS Safety Report 6728534-5 (Version None)
Quarter: 2010Q2

REPORT INFORMATION
  Report Type: 
  Country: None (occurrence: None)
  Receive Date: 20100517
  Receipt Date: 20100503
  Transmission Date: 20101027
  Serious: Yes (Life-Threatening, Hospitalization)
  Sender: FDA-Public Use
  Company Number: DE-MYLANLABS-2010S1007878

PATIENT
  Age: 85 Year
  Sex: Female
  Weight: 63 kg

DRUGS (9)
  1. BISOPROLOL [Suspect]
     Indication: HYPERTENSION
     Route: 048
     Dates: start: 20080501
  2. MOLSIDOMIN [Suspect]
     Indication: CORONARY ARTERY DISEASE
     Route: 048
  3. ENALAPRIL [Suspect]
     Indication: HYPERTENSION
     Route: 048
     Dates: start: 20050101, end: 20091109
  4. TORASEMIDE [Suspect]
     Indication: RENAL FAILURE CHRONIC
     Route: 048
     Dates: end: 20091109
  5. CALCILAC KT [Concomitant]
     Indication: OSTEOPOROSIS
     Dosage: 1 DF= 600MG CALCIUM CARBONATE + 400IU VITAMIND3
     Route: 048
     Dates: start: 20080501
  6. ACETYLSALICYLIC ACID [Concomitant]
     Indication: ISCHAEMIC HEART DISEASE PROPHYLAXIS
     Route: 048
     Dates: start: 20080501
  7. BERLINSULIN H [Concomitant]
     Indication: DIABETES MELLITUS
     Dosage: DOSIS/APPLIKATION: 20/10 IU
     Route: 058
     Dates: start: 20080501
  8. OXYCODONE [Concomitant]
     Indication: ARTHRALGIA
     Route: 048
     Dates: start: 20050101
  9. OMEPRAZOLE [Concomitant]
     Indication: PROPHYLAXIS AGAINST GASTROINTESTINAL ULCER
     Route: 048
     Dates: start: 20080501

REACTIONS (1)
  - RENAL FAILURE ACUTE [None]
